FAERS Safety Report 5889053-1 (Version None)
Quarter: 2008Q3

REPORT INFORMATION
  Report Type: 
  Country: None (occurrence: None)
  Receive Date: 20080919
  Receipt Date: 20080807
  Transmission Date: 20090109
  Serious: No
  Sender: FDA-Public Use
  Company Number: US-KINGPHARMUSA00001-K200800948

PATIENT

DRUGS (1)
  1. SONATA [Suspect]

REACTIONS (1)
  - HEADACHE [None]
